FAERS Safety Report 6579912-9 (Version None)
Quarter: 2010Q1

REPORT INFORMATION
  Report Type: 
  Country: None (occurrence: None)
  Receive Date: 20100212
  Receipt Date: 20100203
  Transmission Date: 20100710
  Serious: Yes (Hospitalization)
  Sender: FDA-Public Use
  Company Number: GXKR2010SG01484

PATIENT
  Age: 67 Year
  Sex: Female

DRUGS (2)
  1. HYDROXYCHLOROQUINE (NGX) [Suspect]
     Indication: SYSTEMIC LUPUS ERYTHEMATOSUS
     Dosage: UNK
     Route: 065
     Dates: start: 20080901
  2. CYCLOSPORINE [Concomitant]
     Indication: SYSTEMIC LUPUS ERYTHEMATOSUS
     Route: 065

REACTIONS (11)
  - ACUTE GENERALISED EXANTHEMATOUS PUSTULOSIS [None]
  - CONJUNCTIVITIS [None]
  - LEUKOCYTOSIS [None]
  - MOUTH ULCERATION [None]
  - PYREXIA [None]
  - RASH MACULAR [None]
  - RASH PRURITIC [None]
  - RASH PUSTULAR [None]
  - SCAR [None]
  - SKIN EXFOLIATION [None]
  - TOXIC EPIDERMAL NECROLYSIS [None]
